FAERS Safety Report 17062935 (Version 3)
Quarter: 2020Q4

REPORT INFORMATION
  Report Type: Report from Study
  Country: US (occurrence: US)
  Receive Date: 20191122
  Receipt Date: 20201005
  Transmission Date: 20210113
  Serious: Yes (Other)
  Sender: FDA-Public Use
  Company Number: US-ROCHE-2364916

PATIENT
  Age: 52 Year
  Sex: Male
  Weight: 104.3 kg

DRUGS (3)
  1. ENTINOSTAT [Suspect]
     Active Substance: ENTINOSTAT
     Indication: RENAL CELL CARCINOMA
     Dosage: ON 15/OCT/2019, HE RECEIVED MOST RECENT DOSE OF ENTINOSTAT.?ON 19/MAY/2020, AGAIN RECEIVED THERAPY W
     Route: 048
     Dates: start: 20190701
  2. ATEZOLIZUMAB. [Suspect]
     Active Substance: ATEZOLIZUMAB
     Indication: RENAL CELL CARCINOMA
     Dosage: ON 01/OCT/2019, HE RECEIVED MOST RECENT DOSE OF ATEZOLIZUMAB.?ON 12/NOV/2019, HE AGAIN RECEIVED THER
     Route: 042
     Dates: start: 20190701
  3. BEVACIZUMAB. [Suspect]
     Active Substance: BEVACIZUMAB
     Indication: RENAL CELL CARCINOMA
     Dosage: ON 01/OCT/2019, RECEIVED MOST RECENT DOSE OF BEVACIZUMAB.?ON 19/MAY/2020, AGAIN RECEIVED THERAPY WIT
     Route: 042
     Dates: start: 20190701

REACTIONS (5)
  - Hyperthyroidism [Recovered/Resolved]
  - Blood bilirubin increased [Recovered/Resolved]
  - Drug-induced liver injury [Unknown]
  - Alanine aminotransferase increased [Not Recovered/Not Resolved]
  - Aspartate aminotransferase increased [Not Recovered/Not Resolved]

NARRATIVE: CASE EVENT DATE: 20190723
